FAERS Safety Report 26126344 (Version 1)
Quarter: 2025Q4

REPORT INFORMATION
  Report Type: Spontaneous
  Country: CN (occurrence: CN)
  Receive Date: 20251205
  Receipt Date: 20251205
  Transmission Date: 20260118
  Serious: Yes (Hospitalization, Other)
  Sender: BAXTER
  Company Number: None

PATIENT
  Age: 56 Year
  Sex: Female
  Weight: 53.5 kg

DRUGS (2)
  1. CYCLOPHOSPHAMIDE [Suspect]
     Active Substance: CYCLOPHOSPHAMIDE
     Indication: Breast cancer female
     Dosage: 899 MG, EVERY 3 WK
     Route: 041
     Dates: start: 20251015, end: 20251106
  2. TAXOL [Suspect]
     Active Substance: PACLITAXEL
     Indication: Breast cancer female
     Dosage: 262 MG, EVERY 3 WK
     Route: 041
     Dates: start: 20251015, end: 20251106

REACTIONS (4)
  - Drug eruption [Recovering/Resolving]
  - Pruritus [Recovering/Resolving]
  - Erythema [Recovering/Resolving]
  - Rash erythematous [Recovering/Resolving]

NARRATIVE: CASE EVENT DATE: 20251116
